FAERS Safety Report 12987307 (Version 1)
Quarter: 2016Q4

REPORT INFORMATION
  Report Type: Spontaneous
  Country: US (occurrence: US)
  Receive Date: 20161130
  Receipt Date: 20161130
  Transmission Date: 20170207
  Serious: No
  Sender: FDA-Public Use
  Company Number: US-AMNEAL PHARMACEUTICALS-2016AMN00259

PATIENT

DRUGS (1)
  1. IBUPROFEN. [Suspect]
     Active Substance: IBUPROFEN

REACTIONS (5)
  - Feeling abnormal [Unknown]
  - Product quality issue [Unknown]
  - Dizziness [Unknown]
  - Emotional disorder [Unknown]
  - Tremor [Unknown]
